FAERS Safety Report 23818019 (Version 1)
Quarter: 2024Q2

REPORT INFORMATION
  Report Type: Spontaneous
  Country: PL (occurrence: None)
  Receive Date: 20240506
  Receipt Date: 20240506
  Transmission Date: 20240716
  Serious: Yes (Hospitalization)
  Sender: FDA-Public Use
  Company Number: PL-MLMSERVICE-20240424-PI031577-00097-4

PATIENT
  Age: 14 Year
  Sex: Male

DRUGS (4)
  1. METHOTREXATE [Suspect]
     Active Substance: METHOTREXATE
     Indication: Prophylaxis against graft versus host disease
     Dosage: SHORT COURSE
  2. METHOTREXATE [Suspect]
     Active Substance: METHOTREXATE
     Indication: Chronic graft versus host disease in skin
     Dosage: LOW DOSE
  3. CYCLOSPORINE [Suspect]
     Active Substance: CYCLOSPORINE
     Indication: Prophylaxis against graft versus host disease
  4. PREDNISONE [Suspect]
     Active Substance: PREDNISONE
     Indication: Graft versus host disease
     Dosage: LOW DOSE

REACTIONS (6)
  - Cytomegalovirus infection reactivation [Unknown]
  - Epstein-Barr virus test positive [Recovered/Resolved]
  - Gastrointestinal inflammation [Unknown]
  - Epstein-Barr viraemia [Recovered/Resolved]
  - Product use in unapproved indication [Unknown]
  - Chronic graft versus host disease in skin [Unknown]
